FAERS Safety Report 4500802-7 (Version None)
Quarter: 2004Q4

REPORT INFORMATION
  Report Type: 
  Country: None (occurrence: None)
  Receive Date: 20041109
  Receipt Date: 20041027
  Transmission Date: 20050328
  Serious: Yes (Hospitalization)
  Sender: FDA-Public Use
  Company Number: 209982

PATIENT
  Age: 47 Year
  Sex: Male
  Weight: 93 kg

DRUGS (4)
  1. AVASTIN [Suspect]
     Indication: COLON CANCER METASTATIC
     Dosage: 450 MG, Q2W, INTRAVENOUS
     Route: 042
     Dates: start: 20041018
  2. FLUOROURACIL [Concomitant]
  3. LEUCOVORIN (LEUCOVORIN CALCIUM) [Concomitant]
  4. OXLIPLATIN (OXALIPLATIN) [Concomitant]

REACTIONS (4)
  - FLUSHING [None]
  - HEART RATE INCREASED [None]
  - INFUSION RELATED REACTION [None]
  - PYREXIA [None]
